FAERS Safety Report 18341810 (Version 1)
Quarter: 2020Q4

REPORT INFORMATION
  Report Type: Spontaneous
  Country: FR (occurrence: FR)
  Receive Date: 20201005
  Receipt Date: 20201005
  Transmission Date: 20210113
  Serious: Yes (Other)
  Sender: FDA-Public Use
  Company Number: FR-SUN PHARMACEUTICAL INDUSTRIES LTD-2020RR-263192

PATIENT
  Age: 32 Year
  Sex: Male
  Weight: 105 kg

DRUGS (15)
  1. ACIDE TRANEXAMIQUE AGUETTANT [Suspect]
     Active Substance: TRANEXAMIC ACID
     Indication: HAEMORRHAGE
     Dosage: 1 GRAM, IN TOTAL
     Route: 042
     Dates: start: 20200419, end: 20200419
  2. ROCURONIUM B BRAUN [Suspect]
     Active Substance: ROCURONIUM BROMIDE
     Indication: INDUCTION OF ANAESTHESIA
     Dosage: 100 MILLIGRAM, DAILY
     Route: 042
     Dates: start: 20200419, end: 20200419
  3. ETOMIDATE LIPURO [Suspect]
     Active Substance: ETOMIDATE
     Indication: INDUCTION OF ANAESTHESIA
     Dosage: 40 MILLIGRAM, DAILY
     Route: 042
     Dates: start: 20200419, end: 20200419
  4. MIDAZOLAM MYLAN 1 MG/ML, SOLUTION INJECTABLE (IM-IV) OU RECTALE [Suspect]
     Active Substance: MIDAZOLAM HYDROCHLORIDE
     Indication: INDUCTION OF ANAESTHESIA
     Dosage: 1 MILLIGRAM, DAILY
     Route: 042
     Dates: start: 20200419, end: 20200419
  5. SUFENTANIL MYLAN [Suspect]
     Active Substance: SUFENTANIL
     Indication: INDUCTION OF ANAESTHESIA
     Dosage: 40 MICROGRAM, DAILY
     Route: 042
     Dates: start: 20200419, end: 20200419
  6. ACUPAN [Suspect]
     Active Substance: NEFOPAM HYDROCHLORIDE
     Indication: PAIN
     Dosage: ()
     Route: 042
     Dates: start: 20200418, end: 20200418
  7. CHLORHEXIDINE (CHLORHYDRATE DE) [Suspect]
     Active Substance: CHLORHEXIDINE
     Indication: INFECTION PROPHYLAXIS
     Dosage: ()
     Route: 003
     Dates: start: 20200419, end: 20200419
  8. NORADRENALINE MYLAN [Suspect]
     Active Substance: NOREPINEPHRINE\NOREPINEPHRINE BITARTRATE
     Indication: SHOCK HAEMORRHAGIC
     Dosage: ()
     Route: 042
     Dates: start: 20200419, end: 20200419
  9. MORPHINE [Suspect]
     Active Substance: MORPHINE
     Indication: PAIN
     Dosage: 7 MILLIGRAM, DAILY
     Route: 042
     Dates: start: 20200418, end: 20200418
  10. GELOFUSINE 4 POUR CENT, SOLUTION INJECTABLE POUR PERFUSION EN FLACON [Suspect]
     Active Substance: SUCCINYLATED GELATIN
     Indication: HAEMORRHAGE
     Dosage: 500 MILLIGRAM, DAILY
     Route: 042
     Dates: start: 20200419, end: 20200419
  11. PERFALGAN [Suspect]
     Active Substance: ACETAMINOPHEN
     Indication: PAIN
     Dosage: 1 GRAM, DAILY
     Route: 042
     Dates: start: 20200418, end: 20200418
  12. AMOXICILLINE ACIDE CLAVULANIQUE SANDOZ [Suspect]
     Active Substance: AMOXICILLIN\CLAVULANATE POTASSIUM
     Indication: ANTIBIOTIC PROPHYLAXIS
     Dosage: 2 GRAM, IN TOTAL
     Route: 042
     Dates: start: 20200419, end: 20200419
  13. IOMERON [Suspect]
     Active Substance: IOMEPROL
     Indication: COMPUTERISED TOMOGRAM
     Dosage: 120 MILLILITER, DAILY
     Route: 042
     Dates: start: 20200418, end: 20200418
  14. SUXAMETHONIUM BIOCODEX [Suspect]
     Active Substance: SUCCINYLCHOLINE CHLORIDE
     Indication: ANAESTHESIA
     Dosage: 100 MILLIGRAM, DAILY
     Route: 042
     Dates: start: 20200419, end: 20200419
  15. CLOTTAFACT [Suspect]
     Active Substance: FIBRINOGEN HUMAN
     Indication: HAEMORRHAGE
     Dosage: 3 GRAM, DAILY
     Route: 042
     Dates: start: 20200419, end: 20200419

REACTIONS (1)
  - Angioedema [Recovered/Resolved]

NARRATIVE: CASE EVENT DATE: 20200419
